FAERS Safety Report 24887216 (Version 2)
Quarter: 2025Q1

REPORT INFORMATION
  Report Type: Spontaneous
  Country: JP (occurrence: JP)
  Receive Date: 20250127
  Receipt Date: 20250224
  Transmission Date: 20250409
  Serious: Yes (Hospitalization, Other)
  Sender: ALEXION PHARMACEUTICALS
  Company Number: JP-ASTRAZENECA-250005780_013120_P_1

PATIENT
  Age: 81 Year
  Weight: 78 kg

DRUGS (18)
  1. DURVALUMAB [Suspect]
     Active Substance: DURVALUMAB
     Indication: Bile duct cancer
  2. CISPLATIN [Concomitant]
     Active Substance: CISPLATIN
     Indication: Bile duct cancer
     Route: 065
  3. GEMCITABINE HYDROCHLORIDE [Concomitant]
     Active Substance: GEMCITABINE HYDROCHLORIDE
     Indication: Bile duct cancer
     Route: 065
  4. LEVOTHYROXINE [Concomitant]
     Active Substance: LEVOTHYROXINE
     Dosage: AFTER BREAKFAST, WITH DOSE ADJUSTED
  5. LEVOTHYROXINE [Concomitant]
     Active Substance: LEVOTHYROXINE
     Dosage: AFTER BREAKFAST
  6. LEVOTHYROXINE [Concomitant]
     Active Substance: LEVOTHYROXINE
     Dosage: AFTER BREAKFAST
  7. CISPLATIN [Concomitant]
     Active Substance: CISPLATIN
     Route: 065
  8. CISPLATIN [Concomitant]
     Active Substance: CISPLATIN
     Route: 065
  9. CISPLATIN [Concomitant]
     Active Substance: CISPLATIN
     Route: 065
  10. CISPLATIN [Concomitant]
     Active Substance: CISPLATIN
     Route: 065
  11. CISPLATIN [Concomitant]
     Active Substance: CISPLATIN
     Route: 065
  12. CISPLATIN [Concomitant]
     Active Substance: CISPLATIN
     Route: 065
  13. CISPLATIN [Concomitant]
     Active Substance: CISPLATIN
     Route: 065
  14. CISPLATIN [Concomitant]
     Active Substance: CISPLATIN
     Route: 065
  15. CISPLATIN [Concomitant]
     Active Substance: CISPLATIN
     Route: 065
  16. CISPLATIN [Concomitant]
     Active Substance: CISPLATIN
     Route: 065
  17. GEMCITABINE [Concomitant]
     Active Substance: GEMCITABINE
  18. GEMCITABINE [Concomitant]
     Active Substance: GEMCITABINE

REACTIONS (2)
  - Adrenal insufficiency [Recovering/Resolving]
  - Pyrexia [Recovered/Resolved]
